FAERS Safety Report 14010821 (Version 1)
Quarter: 2017Q3

REPORT INFORMATION
  Report Type: Spontaneous
  Country: US (occurrence: None)
  Receive Date: 20170925
  Receipt Date: 20170925
  Transmission Date: 20171128
  Serious: Yes (Hospitalization)
  Sender: FDA-Public Use
  Company Number: None

PATIENT
  Age: 75 Year
  Sex: Male

DRUGS (15)
  1. HYDROCO/APAP [Concomitant]
     Active Substance: ACETAMINOPHEN\HYDROCODONE
  2. POT CHLOR [Concomitant]
  3. LEVOTHYROXIN [Concomitant]
     Active Substance: LEVOTHYROXINE
  4. CARB/LEVO [Concomitant]
     Active Substance: CARBIDOPA\LEVODOPA
  5. FENTANYL. [Concomitant]
     Active Substance: FENTANYL
  6. SIMVASTATIN. [Concomitant]
     Active Substance: SIMVASTATIN
  7. ADCIRCA [Suspect]
     Active Substance: TADALAFIL
     Indication: PULMONARY ARTERIAL HYPERTENSION
     Route: 048
     Dates: start: 20150930
  8. CALCITRIOL. [Concomitant]
     Active Substance: CALCITRIOL
  9. CARVEDILOL. [Concomitant]
     Active Substance: CARVEDILOL
  10. DOK [Concomitant]
     Active Substance: DOCUSATE SODIUM
  11. LETAIRIS [Concomitant]
     Active Substance: AMBRISENTAN
  12. GABAPENTIN. [Concomitant]
     Active Substance: GABAPENTIN
  13. ALLOPRUINOL [Concomitant]
  14. FUROSEMIDE. [Concomitant]
     Active Substance: FUROSEMIDE
  15. METOPROLOL. [Concomitant]
     Active Substance: METOPROLOL

REACTIONS (2)
  - Dyspnoea [None]
  - Dialysis [None]

NARRATIVE: CASE EVENT DATE: 20170918
